FAERS Safety Report 10252062 (Version 1)
Quarter: 2014Q2

REPORT INFORMATION
  Report Type: Report from Study
  Country: US (occurrence: US)
  Receive Date: 20140623
  Receipt Date: 20140623
  Transmission Date: 20141212
  Serious: Yes (Other)
  Sender: FDA-Public Use
  Company Number: PHHY2014US076359

PATIENT
  Age: 43 Year
  Sex: Female
  Weight: 48 kg

DRUGS (4)
  1. GILENYA [Suspect]
     Indication: MULTIPLE SCLEROSIS
     Dosage: 0.5 MG, QD
     Route: 048
     Dates: start: 20120101
  2. BACLOFEN [Concomitant]
     Dosage: 10 MG, TID
     Route: 048
  3. NEXIUM//ESOMEPRAZOLE MAGNESIUM [Concomitant]
     Dosage: 10 MG, QD
     Route: 048
  4. COUMADINE [Concomitant]
     Dosage: 5 MG, QD
     Route: 048

REACTIONS (16)
  - Neutrophil count increased [Unknown]
  - Monocyte count increased [Unknown]
  - White blood cell count decreased [Unknown]
  - Lymphocyte count decreased [Unknown]
  - Red blood cell count decreased [Unknown]
  - Haemoglobin decreased [Unknown]
  - Haematocrit decreased [Unknown]
  - Mean cell volume decreased [Unknown]
  - Mean cell haemoglobin decreased [Unknown]
  - Mean cell haemoglobin concentration decreased [Unknown]
  - Red cell distribution width increased [Unknown]
  - Blood glucose increased [Unknown]
  - Blood potassium decreased [Unknown]
  - Blood calcium decreased [Unknown]
  - Prothrombin time prolonged [Unknown]
  - White blood cell count increased [Unknown]
